FAERS Safety Report 9209951 (Version 1)
Quarter: 2013Q1

REPORT INFORMATION
  Report Type: Spontaneous
  Country: US (occurrence: None)
  Receive Date: 20120820
  Receipt Date: 20120820
  Transmission Date: 20140127
  Serious: No
  Sender: FDA-Public Use
  Company Number: 1000030990

PATIENT
  Age: 29 Year
  Sex: Female

DRUGS (4)
  1. VIIBRYD [Suspect]
     Indication: DEPRESSION
     Route: 048
     Dates: start: 20120215, end: 20120221
  2. VIIBRYD [Suspect]
     Route: 048
     Dates: start: 20120229, end: 201205
  3. VYVANSE(LISDEXAMFETAMINE MESILATE) (LISDEXAMFETAMINE MESILATE) [Concomitant]
  4. INSULIN (INSULIN)(INSULIN) [Concomitant]

REACTIONS (1)
  - Contusion [None]
